FAERS Safety Report 9231449 (Version 1)
Quarter: 2013Q2

REPORT INFORMATION
  Report Type: Spontaneous
  Country: US (occurrence: US)
  Receive Date: 20130415
  Receipt Date: 20130415
  Transmission Date: 20140414
  Serious: Yes (Hospitalization)
  Sender: FDA-Public Use
  Company Number: US-GLAXOSMITHKLINE-A0835830A

PATIENT
  Age: 53 Year
  Sex: Male

DRUGS (2)
  1. AVANDIA [Suspect]
     Indication: DIABETES MELLITUS
     Dosage: 8MG PER DAY
     Route: 048
  2. ALEVE [Concomitant]

REACTIONS (5)
  - Myocardial infarction [Not Recovered/Not Resolved]
  - Cardiogenic shock [Unknown]
  - Cardiac failure congestive [Unknown]
  - Bundle branch block right [Unknown]
  - Atrial flutter [Unknown]
